FAERS Safety Report 23800058 (Version 2)
Quarter: 2024Q2

REPORT INFORMATION
  Report Type: Spontaneous
  Country: US (occurrence: US)
  Receive Date: 20240430
  Receipt Date: 20240603
  Transmission Date: 20240716
  Serious: Yes (Hospitalization)
  Sender: FDA-Public Use
  Company Number: US-BIOVITRUM-2024-US-004392

PATIENT
  Age: 52 Year
  Sex: Female

DRUGS (3)
  1. KINERET [Suspect]
     Active Substance: ANAKINRA
     Indication: Encephalitis autoimmune
     Dosage: ONCE DAILY (QD)
     Route: 058
  2. KINERET [Suspect]
     Active Substance: ANAKINRA
     Dosage: TWICE DAILY
     Route: 058
  3. KINERET [Suspect]
     Active Substance: ANAKINRA
     Dosage: AS ORDERED
     Route: 058

REACTIONS (4)
  - Condition aggravated [Unknown]
  - Product dose omission in error [Unknown]
  - Insurance issue [Unknown]
  - Off label use [Unknown]

NARRATIVE: CASE EVENT DATE: 20240428
